FAERS Safety Report 4499408-8 (Version None)
Quarter: 2004Q4

REPORT INFORMATION
  Report Type: 
  Country: None (occurrence: None)
  Receive Date: 20040928
  Receipt Date: 20040806
  Transmission Date: 20050328
  Serious: No
  Sender: FDA-Public Use
  Company Number: 04P-163-0269628-00

PATIENT
  Age: 78 Year
  Sex: Female

DRUGS (7)
  1. HUMIRA [Suspect]
     Indication: RHEUMATOID ARTHRITIS
     Dosage: 40 MG 1 IN 2 WEEK SUBCUTANEOUS
     Route: 058
     Dates: start: 20040709
  2. METHOTREXATE [Concomitant]
  3. LISINOPRIL [Concomitant]
  4. FOLIC ACID [Concomitant]
  5. PANTOPRAZOLE [Concomitant]
  6. ALENDRONATE SODIUM [Concomitant]
  7. CONJUGATED ESTROGEN [Concomitant]

REACTIONS (4)
  - CHEST WALL PAIN [None]
  - INJECTION SITE PAIN [None]
  - NODULE [None]
  - RHEUMATOID ARTHRITIS [None]
